FAERS Safety Report 4834749-3 (Version None)
Quarter: 2005Q4

REPORT INFORMATION
  Report Type: 
  Country: None (occurrence: None)
  Receive Date: 20051122
  Receipt Date: 20050817
  Transmission Date: 20060501
  Serious: No
  Sender: FDA-Public Use
  Company Number: US-BRISTOL-MYERS SQUIBB COMPANY-13083050

PATIENT
  Age: 71 Year
  Sex: Male
  Weight: 91 kg

DRUGS (5)
  1. PRAVACHOL [Suspect]
     Indication: BLOOD CHOLESTEROL INCREASED
     Route: 048
     Dates: start: 20050701
  2. VITAMINS [Concomitant]
  3. ECOTRIN [Concomitant]
  4. LUMIGAN [Concomitant]
     Dosage: EACH EYE
  5. ALPHAGAN [Concomitant]
     Dosage: EACH EYE

REACTIONS (4)
  - MICTURITION URGENCY [None]
  - URINARY INCONTINENCE [None]
  - URINARY TRACT DISORDER [None]
  - URINE OUTPUT DECREASED [None]
